FAERS Safety Report 6692534-4 (Version None)
Quarter: 2010Q2

REPORT INFORMATION
  Report Type: 
  Country: None (occurrence: None)
  Receive Date: 20100422
  Receipt Date: 20100415
  Transmission Date: 20101027
  Serious: Yes (Other)
  Sender: FDA-Public Use
  Company Number: US-ABBOTT-10P-163-0639378-00

PATIENT
  Sex: Male
  Weight: 92.162 kg

DRUGS (2)
  1. HUMIRA [Suspect]
     Indication: PSORIASIS
     Dates: start: 20090101
  2. LOCAL ANESTHETICS [Concomitant]
     Indication: SURGERY
     Dates: start: 20091204, end: 20091204

REACTIONS (4)
  - DEVICE DISLOCATION [None]
  - SNORING [None]
  - TREATMENT FAILURE [None]
  - WEIGHT INCREASED [None]
